FAERS Safety Report 24528272 (Version 1)
Quarter: 2024Q4

REPORT INFORMATION
  Report Type: Spontaneous
  Country: GB (occurrence: GB)
  Receive Date: 20241021
  Receipt Date: 20241021
  Transmission Date: 20250114
  Serious: Yes (Life-Threatening, Hospitalization, Other)
  Sender: PFIZER
  Company Number: None

PATIENT
  Age: 87 Year
  Sex: Female

DRUGS (1)
  1. DALTEPARIN SODIUM [Suspect]
     Active Substance: DALTEPARIN SODIUM
     Dosage: 15000 UNITS ONCE A DAY (TREATMENT DOSE)
     Dates: start: 20241003, end: 20241005

REACTIONS (1)
  - Heparin-induced thrombocytopenia [Recovering/Resolving]

NARRATIVE: CASE EVENT DATE: 20241003
